FAERS Safety Report 20153440 (Version 1)
Quarter: 2021Q4

REPORT INFORMATION
  Report Type: Spontaneous
  Country: JP (occurrence: JP)
  Receive Date: 20211206
  Receipt Date: 20211206
  Transmission Date: 20220303
  Serious: Yes (Hospitalization, Other)
  Sender: FDA-Public Use
  Company Number: JP-TEVA-2021-JP-1984828

PATIENT
  Age: 54 Year
  Sex: Male
  Weight: 56 kg

DRUGS (6)
  1. CLOPIDOGREL [Suspect]
     Active Substance: CLOPIDOGREL BISULFATE
     Indication: Thrombosis
     Dosage: 75 MILLIGRAM DAILY;
     Route: 065
  2. WARFARIN [Suspect]
     Active Substance: WARFARIN
     Indication: Anticoagulant therapy
     Dosage: 3.5 MILLIGRAM DAILY;
     Route: 065
  3. WARFARIN [Suspect]
     Active Substance: WARFARIN
     Indication: Thrombosis
  4. EVEROLIMUS [Suspect]
     Active Substance: EVEROLIMUS
     Indication: Acute myocardial infarction
     Dosage: DRUG-ELUTING STENT
     Route: 065
  5. ASPIRIN [Suspect]
     Active Substance: ASPIRIN
     Indication: Thrombosis
     Dosage: 100 MILLIGRAM DAILY;
     Route: 065
  6. ASPIRIN [Suspect]
     Active Substance: ASPIRIN
     Indication: Antiplatelet therapy

REACTIONS (7)
  - Hepatic function abnormal [Unknown]
  - Vascular stent thrombosis [Recovering/Resolving]
  - Acute coronary syndrome [Recovering/Resolving]
  - Positive vessel remodelling [Recovering/Resolving]
  - Angiopathy [Recovering/Resolving]
  - Acute myocardial infarction [Recovering/Resolving]
  - Drug ineffective [Unknown]
